FAERS Safety Report 16580264 (Version 1)
Quarter: 2019Q3

REPORT INFORMATION
  Report Type: Spontaneous
  Country: PL (occurrence: PL)
  Receive Date: 20190716
  Receipt Date: 20190716
  Transmission Date: 20191004
  Serious: Yes (Hospitalization)
  Sender: FDA-Public Use
  Company Number: PL-MYLANLABS-2019M1066793

PATIENT
  Age: 52 Year
  Sex: Female

DRUGS (5)
  1. ZOLPIDEM [Suspect]
     Active Substance: ZOLPIDEM TARTRATE
     Indication: MAJOR DEPRESSION
     Dosage: AT A DOSE OF 10 MG BEFORE BEDTIME
  2. CIPROFLOXACIN. [Interacting]
     Active Substance: CIPROFLOXACIN
     Dosage: CIPROFLOXACIN DOSE 2 X 500 MG P.O., THEN INCREASED TO 3X500 MG
     Route: 048
  3. CIPROFLOXACIN. [Interacting]
     Active Substance: CIPROFLOXACIN
     Indication: URINARY TRACT INFECTION
     Dosage: CIPROFLOXACIN DOSE 2 X 500 MG P.O., THEN INCREASED TO 3X500 MG
     Route: 048
  4. DULOXETINE. [Interacting]
     Active Substance: DULOXETINE
     Indication: MAJOR DEPRESSION
     Dosage: UNK
  5. TRAMADOL. [Interacting]
     Active Substance: TRAMADOL
     Indication: PRODUCT USED FOR UNKNOWN INDICATION
     Dosage: UNK

REACTIONS (4)
  - Drug withdrawal syndrome [Unknown]
  - Leukocytosis [Unknown]
  - Drug interaction [Recovered/Resolved]
  - Myalgia [Recovered/Resolved]
